FAERS Safety Report 7159070-2 (Version None)
Quarter: 2010Q4

REPORT INFORMATION
  Report Type: 
  Country: None (occurrence: None)
  Receive Date: 20101214
  Receipt Date: 20101209
  Transmission Date: 20110411
  Serious: Yes (Other)
  Sender: FDA-Public Use
  Company Number: US-ABBOTT-09P-163-0563801-00

PATIENT
  Sex: Female
  Weight: 63.106 kg

DRUGS (17)
  1. HUMIRA [Suspect]
     Indication: PSORIATIC ARTHROPATHY
     Route: 050
     Dates: start: 20080225, end: 20080404
  2. HUMIRA [Suspect]
     Route: 050
     Dates: start: 20080411, end: 20080925
  3. PRENATAL VITAMINS [Concomitant]
     Indication: PRODUCT USED FOR UNKNOWN INDICATION
     Dosage: 2 PILLS DAILY
     Route: 048
     Dates: start: 20080409, end: 20080929
  4. ORTHO TRI-CYCLEN [Concomitant]
     Indication: PRODUCT USED FOR UNKNOWN INDICATION
     Dosage: 1 PILL
     Route: 048
     Dates: start: 20080225, end: 20080322
  5. TYLENOL (CAPLET) [Concomitant]
     Indication: HEADACHE
     Route: 048
     Dates: start: 20080406, end: 20080406
  6. TYLENOL (CAPLET) [Concomitant]
     Indication: PYREXIA
     Dates: start: 20080426, end: 20080427
  7. TYLENOL (CAPLET) [Concomitant]
     Route: 048
     Dates: start: 20080411, end: 20080411
  8. TYLENOL (CAPLET) [Concomitant]
     Route: 048
     Dates: start: 20080420, end: 20080420
  9. TYLENOL (CAPLET) [Concomitant]
     Route: 048
     Dates: start: 20080625, end: 20080625
  10. TYLENOL (CAPLET) [Concomitant]
     Dosage: 2 PILL
     Dates: start: 20080715, end: 20080929
  11. INDOCIN [Concomitant]
     Indication: PREMATURE LABOUR
     Dosage: 6 PILLS
     Route: 048
     Dates: start: 20080715, end: 20080927
  12. INDOCIN [Concomitant]
     Indication: PROPHYLAXIS
  13. MORPHINE [Concomitant]
     Indication: PAIN
     Route: 042
     Dates: start: 20080715, end: 20080716
  14. NOS-LABOR, MEDICATION TO STOP [Concomitant]
     Indication: PREMATURE LABOUR
     Dosage: 1 SHOT
     Route: 050
     Dates: start: 20080728, end: 20080831
  15. NOS-LABOR, MEDICATION TO STOP [Concomitant]
     Dosage: 1 SHOT
     Route: 050
     Dates: start: 20080928, end: 20080928
  16. MAGNESIUM [Concomitant]
     Indication: PRODUCT USED FOR UNKNOWN INDICATION
     Route: 042
     Dates: start: 20080928, end: 20080928
  17. TUMS [Concomitant]
     Indication: DYSPEPSIA
     Dosage: 2 PILLS
     Route: 048
     Dates: start: 20080901, end: 20080929

REACTIONS (2)
  - ARTHRALGIA [None]
  - CERVICAL INCOMPETENCE [None]
